FAERS Safety Report 25361411 (Version 2)
Quarter: 2025Q2

REPORT INFORMATION
  Report Type: Spontaneous
  Country: JP (occurrence: JP)
  Receive Date: 20250527
  Receipt Date: 20250529
  Transmission Date: 20250716
  Serious: Yes (Hospitalization, Other)
  Sender: MERCK SHARP & DOHME LLC
  Company Number: JP-009507513-2288619

PATIENT
  Age: 65 Year
  Sex: Male

DRUGS (2)
  1. KEYTRUDA [Suspect]
     Active Substance: PEMBROLIZUMAB
     Indication: Neoplasm malignant
  2. PLATINUM [Suspect]
     Active Substance: PLATINUM

REACTIONS (7)
  - Febrile neutropenia [Recovering/Resolving]
  - Hypophysitis [Unknown]
  - Stomatitis [Unknown]
  - Renal disorder [Recovering/Resolving]
  - Rash [Unknown]
  - Pruritus [Unknown]
  - Malignant neoplasm progression [Unknown]
